FAERS Safety Report 4691661-0 (Version None)
Quarter: 2005Q2

REPORT INFORMATION
  Report Type: 
  Country: None (occurrence: None)
  Receive Date: 20050616
  Receipt Date: 20050607
  Transmission Date: 20051028
  Serious: Yes (Other)
  Sender: FDA-Public Use
  Company Number: PHBS2005PT08186

PATIENT
  Age: 50 Year
  Sex: Female

DRUGS (5)
  1. ZOMETA [Suspect]
     Indication: MULTIPLE MYELOMA
     Dosage: 4 MG, QMO
     Route: 042
     Dates: start: 20020801, end: 20050301
  2. CYCLOSPORINE [Concomitant]
     Route: 065
  3. INTERFERON ALFA [Concomitant]
     Route: 065
  4. THALIDOMIDE [Concomitant]
     Route: 065
  5. AREDIA [Suspect]
     Indication: MULTIPLE MYELOMA
     Dosage: 90 MG, QMO
     Route: 042
     Dates: start: 19960101, end: 20020801

REACTIONS (4)
  - ACTINOMYCOSIS [None]
  - ASEPTIC NECROSIS BONE [None]
  - BONE INFECTION [None]
  - SURGERY [None]
